FAERS Safety Report 23501906 (Version 2)
Quarter: 2024Q1

REPORT INFORMATION
  Report Type: Spontaneous
  Country: CN (occurrence: CN)
  Receive Date: 20240208
  Receipt Date: 20240216
  Transmission Date: 20240410
  Serious: Yes (Hospitalization, Other)
  Sender: FDA-Public Use
  Company Number: CN-PFIZER INC-PV202400018416

PATIENT
  Age: 66 Year
  Sex: Male
  Weight: 47.5 kg

DRUGS (4)
  1. METHOTREXATE SODIUM [Suspect]
     Active Substance: METHOTREXATE SODIUM
     Indication: Rheumatoid arthritis
     Dosage: 10 MG, WEEKLY; LOW DOSE
  2. MEROPENEM [Suspect]
     Active Substance: MEROPENEM
     Indication: Ascites
  3. CEPHALOTHIN SODIUM [Suspect]
     Active Substance: CEPHALOTHIN SODIUM
     Indication: Ascites
  4. DEXKETOPROFEN [Suspect]
     Active Substance: DEXKETOPROFEN
     Indication: Arthralgia

REACTIONS (9)
  - Drug clearance decreased [Recovered/Resolved]
  - Myelosuppression [Recovered/Resolved]
  - Pancytopenia [Recovered/Resolved]
  - Anaemia [Recovered/Resolved]
  - Renal impairment [Unknown]
  - Gastrointestinal inflammation [Unknown]
  - Infection [Unknown]
  - Ascites [Unknown]
  - Off label use [Unknown]
